FAERS Safety Report 23946662 (Version 1)
Quarter: 2024Q2

REPORT INFORMATION
  Report Type: Spontaneous
  Country: CN (occurrence: CN)
  Receive Date: 20240606
  Receipt Date: 20240606
  Transmission Date: 20240715
  Serious: Yes (Other)
  Sender: FDA-Public Use
  Company Number: CN-FreseniusKabi-FK202408702

PATIENT
  Age: 2 Year
  Sex: Male
  Weight: 13 kg

DRUGS (5)
  1. PROPOFOL [Suspect]
     Active Substance: PROPOFOL
     Indication: Induction of anaesthesia
     Dosage: FORM OF ADMIN: INJECTION
     Route: 042
     Dates: start: 20240504, end: 20240504
  2. FENTANYL CITRATE [Suspect]
     Active Substance: FENTANYL CITRATE
     Indication: Induction of anaesthesia
     Dosage: FOA: INJECTION
     Route: 042
     Dates: start: 20240504, end: 20240504
  3. DEXMEDETOMIDINE HYDROCHLORIDE [Suspect]
     Active Substance: DEXMEDETOMIDINE HYDROCHLORIDE
     Indication: Induction of anaesthesia
     Dosage: FOA: INJECTION
     Route: 042
     Dates: start: 20240504, end: 20240504
  4. PENEHYCLIDINE HYDROCHLORIDE [Suspect]
     Active Substance: PENEHYCLIDINE HYDROCHLORIDE
     Indication: Induction of anaesthesia
     Dosage: FOA: INJECTION
     Route: 042
     Dates: start: 20240504, end: 20240504
  5. ATROPINE SULFATE [Suspect]
     Active Substance: ATROPINE SULFATE
     Indication: Induction of anaesthesia
     Dosage: FOA: INJECTION
     Route: 042
     Dates: start: 20240504, end: 20240504

REACTIONS (4)
  - Rash [Recovered/Resolved]
  - Heart rate increased [Recovered/Resolved]
  - Dysphoria [Recovered/Resolved]
  - Crying [Recovered/Resolved]

NARRATIVE: CASE EVENT DATE: 20240504
